FAERS Safety Report 11982197 (Version 3)
Quarter: 2017Q3

REPORT INFORMATION
  Report Type: Spontaneous
  Country: DE (occurrence: DE)
  Receive Date: 20160201
  Receipt Date: 20170913
  Transmission Date: 20171127
  Serious: Yes (Hospitalization, Other)
  Sender: FDA-Public Use
  Company Number: DE-AMGEN-DEUSP2016010324

PATIENT
  Sex: Male

DRUGS (30)
  1. PEGFILGRASTIM [Suspect]
     Active Substance: PEGFILGRASTIM
     Indication: B-CELL LYMPHOMA
     Dosage: 6 MG, AS REQUIRED FOR 1 DAY
     Route: 058
     Dates: start: 20151219, end: 20151219
  2. VINCRISTINE [Suspect]
     Active Substance: VINCRISTINE
     Indication: B-CELL LYMPHOMA
     Dosage: 3.66 MG, Q2WK FOR 1 DAY
     Route: 042
     Dates: start: 20151217, end: 20151217
  3. TRIMETHOPRIM SULFAMETHOXAZOLE [Concomitant]
     Active Substance: SULFAMETHOXAZOLE\TRIMETHOPRIM
     Indication: PROPHYLAXIS
     Dosage: 960 MG, 3 TIMES A WEEK
     Route: 048
     Dates: start: 20151222
  4. ENOXAPARIN SODIUM. [Concomitant]
     Active Substance: ENOXAPARIN SODIUM
     Indication: PROPHYLAXIS
     Dosage: 40 MG, QD
     Route: 058
     Dates: start: 20151229
  5. SALMETEROL/FLUTICASONPROPIONAAT [Concomitant]
     Active Substance: SALMETEROL
     Indication: ASTHMA
     Dosage: 222 MUG, BID
     Route: 048
  6. COLECALCIFEROL [Concomitant]
     Active Substance: CHOLECALCIFEROL
     Indication: PROPHYLAXIS
     Dosage: 2000 IU, QD
     Route: 048
     Dates: start: 20151202
  7. METOCLOPRAMIDE. [Concomitant]
     Active Substance: METOCLOPRAMIDE
     Dosage: 10 MG, 3 IN 3 D
  8. CYCLOPHOSPHAMIDE. [Suspect]
     Active Substance: CYCLOPHOSPHAMIDE
     Indication: B-CELL LYMPHOMA
     Dosage: 1380.2 MG, Q2WK FOR 1 DAY
     Route: 042
     Dates: start: 20151217, end: 20151217
  9. FENOTEROL HYDROBROMIDE W/IPRATROPIU [Concomitant]
     Indication: ASTHMA
     Dosage: 50 MUG, BID
     Route: 045
  10. PARACETAMOL [Concomitant]
     Active Substance: ACETAMINOPHEN
     Indication: PAIN
     Dosage: 1000 MG, QD
     Route: 048
     Dates: start: 20160106, end: 20160106
  11. PARACETAMOL [Concomitant]
     Active Substance: ACETAMINOPHEN
     Dosage: 40 MMOL, QD
     Route: 048
     Dates: start: 20160106
  12. FUROSEMID [Concomitant]
     Active Substance: FUROSEMIDE
     Indication: PROPHYLAXIS
     Dosage: 40 MG, QD
     Route: 048
     Dates: start: 20160109, end: 20160109
  13. RITUXIMAB. [Suspect]
     Active Substance: RITUXIMAB
     Dosage: 661.9 MG, Q2WK
     Route: 042
     Dates: end: 20160105
  14. RANITIDIN [Concomitant]
     Active Substance: RANITIDINE HYDROCHLORIDE
     Indication: PROPHYLAXIS
     Dosage: 50 MG, 1 TIME A DAY FOR 22 DAYS
     Route: 048
     Dates: start: 20151208, end: 20160105
  15. POTASSIUM HYDROGEN CARBONATE W/SODIUM CITRATE [Concomitant]
     Indication: HYPOKALAEMIA
     Dosage: 40 MMOL, 1 TIMES A DAY
     Route: 048
     Dates: start: 20160106
  16. TRIMETHOPRIM SULFAMETHOXAZOLE [Concomitant]
     Active Substance: SULFAMETHOXAZOLE\TRIMETHOPRIM
     Indication: PROPHYLAXIS
     Dosage: UNK
     Route: 048
  17. PEGFILGRASTIM [Suspect]
     Active Substance: PEGFILGRASTIM
     Dosage: 6 MG, ONE TIME DOSE
     Route: 058
     Dates: start: 20160109, end: 20160109
  18. COLECALCIFEROL [Concomitant]
     Active Substance: CHOLECALCIFEROL
     Dosage: 20000 IU, QD
     Route: 048
     Dates: start: 20160104, end: 20160106
  19. PARACETAMOL [Concomitant]
     Active Substance: ACETAMINOPHEN
     Indication: PYREXIA
     Dosage: 1000 MG, QD
     Route: 048
     Dates: start: 20160103, end: 20160105
  20. DIMETINDENE MALEATE [Concomitant]
     Active Substance: DIMETHINDENE MALEATE
     Indication: PROPHYLAXIS
     Dosage: 4 MG, 1 TIMES A DAY FOR 1 DAY
     Route: 048
     Dates: start: 20160106, end: 20160106
  21. METOCLOPRAMIDE. [Concomitant]
     Active Substance: METOCLOPRAMIDE
     Indication: PROPHYLAXIS
     Dosage: 20 GTT, QD
     Route: 048
     Dates: start: 20160108
  22. RITUXIMAB. [Suspect]
     Active Substance: RITUXIMAB
     Indication: B-CELL LYMPHOMA
     Dosage: 690.02 MG, Q2WK FOR 12 DAYS
     Route: 042
     Dates: start: 20151207, end: 20151218
  23. PREDNISONE. [Suspect]
     Active Substance: PREDNISONE
     Indication: B-CELL LYMPHOMA
     Dosage: 100 MG, Q2WK FOR 5 DAYS
     Route: 048
     Dates: start: 20151218, end: 20160106
  24. OXETACAIN [Concomitant]
     Indication: ANTACID THERAPY
     Dosage: 5 ML, 4 TIMES A DAY FOR 4 DAYS
     Route: 048
     Dates: start: 20151230, end: 20160102
  25. PANTOPRAZOLE [Concomitant]
     Active Substance: PANTOPRAZOLE
     Indication: PROPHYLAXIS
     Dosage: 40 MG, 2 IN 2 D
     Route: 048
     Dates: start: 20151230
  26. PIPERACILLIN AND TAZOBACTAM [Concomitant]
     Active Substance: PIPERACILLIN SODIUM\TAZOBACTAM SODIUM
     Indication: INFECTION
     Dosage: 4G/0.5, 3/D
     Route: 048
     Dates: start: 20160106
  27. DOXORUBICINE [Suspect]
     Active Substance: DOXORUBICIN
     Indication: B-CELL LYMPHOMA
     Dosage: 90.14 MG, Q2WK FOR 1 DAY
     Route: 042
     Dates: start: 20151217, end: 20151217
  28. MESNA. [Concomitant]
     Active Substance: MESNA
     Indication: PROPHYLAXIS
     Dosage: 800 MG, QD
     Route: 048
     Dates: start: 20160106, end: 20160106
  29. TRAMADOL. [Concomitant]
     Active Substance: TRAMADOL
     Indication: PAIN
     Dosage: 100 MG/ML, QD (16 DROPS/DAY)
     Route: 048
     Dates: start: 20160109
  30. MORPHIN [Concomitant]
     Active Substance: MORPHINE
     Indication: PAIN
     Dosage: 2.5 MG, 2 IN 2 D
     Route: 048
     Dates: start: 20160108, end: 20160108

REACTIONS (3)
  - Dehydration [Recovered/Resolved]
  - Sepsis [Unknown]
  - Liver abscess [Recovered/Resolved]

NARRATIVE: CASE EVENT DATE: 20151229
